FAERS Safety Report 15315725 (Version 1)
Quarter: 2018Q3

REPORT INFORMATION
  Report Type: Spontaneous
  Country: US (occurrence: US)
  Receive Date: 20180815
  Receipt Date: 20180815
  Transmission Date: 20181010
  Serious: No
  Sender: FDA-Public Use
  Company Number: None

PATIENT
  Age: 63 Year
  Sex: Female

DRUGS (2)
  1. ELIDEL [Suspect]
     Active Substance: PIMECROLIMUS
     Indication: ECZEMA
     Route: 061
     Dates: start: 20180807, end: 20180813
  2. ELIDEL 1% [Concomitant]
     Dates: start: 20180807, end: 20180813

REACTIONS (2)
  - Skin irritation [None]
  - Erythema [None]

NARRATIVE: CASE EVENT DATE: 20180815
